FAERS Safety Report 12098698 (Version 3)
Quarter: 2016Q4

REPORT INFORMATION
  Report Type: Spontaneous
  Country: US (occurrence: US)
  Receive Date: 20160222
  Receipt Date: 20161115
  Transmission Date: 20170206
  Serious: Yes (Other)
  Sender: FDA-Public Use
  Company Number: US-BRISTOL-MYERS SQUIBB COMPANY-BMS-2016-010362

PATIENT
  Sex: Male

DRUGS (1)
  1. SPRYCEL [Suspect]
     Active Substance: DASATINIB
     Indication: MYELOID LEUKAEMIA
     Dosage: 50 MG, BID
     Route: 048

REACTIONS (5)
  - Pulmonary oedema [Unknown]
  - Respiratory rate decreased [Unknown]
  - Aphasia [Unknown]
  - Gait disturbance [Recovered/Resolved]
  - Off label use [Unknown]
